FAERS Safety Report 18287014 (Version 5)
Quarter: 2021Q1

REPORT INFORMATION
  Report Type: Report from Study
  Country: None (occurrence: US)
  Receive Date: 20200921
  Receipt Date: 20210318
  Transmission Date: 20210419
  Serious: Yes (Other)
  Sender: FDA-Public Use
  Company Number: US-ABBVIE-20K-163-3567233-00

PATIENT
  Age: 79 Year
  Sex: Female
  Weight: 74.46 kg

DRUGS (2)
  1. HUMIRA [Suspect]
     Active Substance: ADALIMUMAB
     Indication: RHEUMATOID ARTHRITIS
     Dosage: CITRATE FREE
     Route: 058
     Dates: start: 2019
  2. COVID?19 VACCINE [Concomitant]
     Indication: COVID-19 IMMUNISATION
     Route: 030
     Dates: start: 20210213, end: 20210213

REACTIONS (11)
  - Rheumatoid arthritis [Not Recovered/Not Resolved]
  - Fall [Unknown]
  - Peripheral swelling [Unknown]
  - Head injury [Unknown]
  - Knee arthroplasty [Recovering/Resolving]
  - Hernia [Not Recovered/Not Resolved]
  - Nerve injury [Recovering/Resolving]
  - Facial bones fracture [Unknown]
  - Contusion [Unknown]
  - Incontinence [Recovering/Resolving]
  - Urinary tract infection [Not Recovered/Not Resolved]

NARRATIVE: CASE EVENT DATE: 20200914
